FAERS Safety Report 8223217-7 (Version None)
Quarter: 2012Q1

REPORT INFORMATION
  Report Type: 
  Country: None (occurrence: None)
  Receive Date: 20120321
  Receipt Date: 20120314
  Transmission Date: 20120608
  Serious: Yes (Hospitalization)
  Sender: FDA-Public Use
  Company Number: US-AMGEN-USASP2012016990

PATIENT
  Age: 76 Year
  Sex: Female

DRUGS (1)
  1. ENBREL [Suspect]
     Indication: RHEUMATOID ARTHRITIS
     Dosage: 50 MG, QWK
     Dates: start: 20100610, end: 20120229

REACTIONS (5)
  - INFUSION SITE INDURATION [None]
  - INFUSION SITE PAIN [None]
  - PALPITATIONS [None]
  - ARTHRALGIA [None]
  - HYPERTENSION [None]
